FAERS Safety Report 5939499-8 (Version None)
Quarter: 2008Q4

REPORT INFORMATION
  Report Type: 
  Country: None (occurrence: None)
  Receive Date: 20081030
  Receipt Date: 20081022
  Transmission Date: 20090506
  Serious: Yes (Other)
  Sender: FDA-Public Use
  Company Number: TAP2008Q00820

PATIENT
  Age: 80 Year
  Sex: Female
  Weight: 65.9 kg

DRUGS (9)
  1. PREVACID [Suspect]
     Indication: GASTROOESOPHAGEAL REFLUX DISEASE
     Dosage: SEE IMAGE
     Route: 048
     Dates: end: 20080101
  2. PREVACID [Suspect]
     Indication: GASTROOESOPHAGEAL REFLUX DISEASE
     Dosage: SEE IMAGE
     Route: 048
     Dates: start: 19960101
  3. PREVACID [Suspect]
     Indication: GASTROOESOPHAGEAL REFLUX DISEASE
     Dosage: SEE IMAGE
     Route: 048
     Dates: start: 20080101
  4. FLUOXETINE [Concomitant]
  5. DILTIAZEM [Concomitant]
  6. CRESTOR [Concomitant]
  7. ATACAND [Concomitant]
  8. ALPRAZOLAM [Concomitant]
  9. NITROQUICK (GLYCERYL TRINITRATE) [Concomitant]

REACTIONS (10)
  - ANXIETY [None]
  - CEREBROVASCULAR ACCIDENT [None]
  - CONDITION AGGRAVATED [None]
  - DEAFNESS UNILATERAL [None]
  - EAR INFECTION [None]
  - HEART RATE INCREASED [None]
  - HYPOACUSIS [None]
  - SYSTEMIC LUPUS ERYTHEMATOSUS [None]
  - TRANSIENT ISCHAEMIC ATTACK [None]
  - TYMPANIC MEMBRANE PERFORATION [None]
